FAERS Safety Report 9046406 (Version 1)
Quarter: 2013Q1

REPORT INFORMATION
  Report Type: Spontaneous
  Country: US (occurrence: US)
  Receive Date: 20130201
  Receipt Date: 20130201
  Transmission Date: 20140127
  Serious: No
  Sender: FDA-Public Use
  Company Number: US-BAYER-2013-007653

PATIENT
  Age: 91 Year
  Sex: Female
  Weight: 44.44 kg

DRUGS (9)
  1. ALEVE CAPLET/TABLET,MIDOL EXTENDED RELIEF CAPLET [Suspect]
     Dosage: 2 DF, BID
     Route: 048
     Dates: start: 20130102
  2. BAYER ASPIRIN REGIMEN ADULT LOW STRENGTH [Concomitant]
  3. LASIX [Concomitant]
  4. CENTRUM SILVER [Concomitant]
  5. ALDACTONE A [Concomitant]
  6. CALCIUM [Concomitant]
  7. FOLIC ACID [Concomitant]
  8. PLAQUENIL [Concomitant]
  9. CELEBREX [Concomitant]

REACTIONS (4)
  - Fatigue [None]
  - Asthenia [None]
  - Dizziness [None]
  - Overdose [None]
